FAERS Safety Report 16641992 (Version 1)
Quarter: 2019Q3

REPORT INFORMATION
  Report Type: Spontaneous
  Country: US (occurrence: US)
  Receive Date: 20190614
  Receipt Date: 20190614
  Transmission Date: 20191004
  Serious: No
  Sender: FDA-Public Use
  Company Number: None

PATIENT
  Age: 57 Year
  Sex: Male
  Weight: 131.54 kg

DRUGS (3)
  1. REPATHA [Suspect]
     Active Substance: EVOLOCUMAB
     Indication: TYPE IIA HYPERLIPIDAEMIA
     Dosage: ADMINISTER 3.5ML SUBCUTANEOUSLY EVERY MONTH OVER 9 MINUTES BY USING THE SINGLE-USE ON-BODY INFUSER
     Route: 058
     Dates: start: 201809
  2. REPATHA [Suspect]
     Active Substance: EVOLOCUMAB
     Indication: ARTERIOSCLEROSIS CORONARY ARTERY
     Dosage: ADMINISTER 3.5ML SUBCUTANEOUSLY EVERY MONTH OVER 9 MINUTES BY USING THE SINGLE-USE ON-BODY INFUSER
     Route: 058
     Dates: start: 201809
  3. REPATHA [Suspect]
     Active Substance: EVOLOCUMAB
     Indication: ISCHAEMIC CARDIOMYOPATHY
     Dosage: ADMINISTER 3.5ML SUBCUTANEOUSLY EVERY MONTH OVER 9 MINUTES BY USING THE SINGLE-USE ON-BODY INFUSER
     Route: 058
     Dates: start: 201809

REACTIONS (2)
  - Dyspnoea [None]
  - Chest pain [None]
